FAERS Safety Report 4296661-0 (Version None)
Quarter: 2004Q1

REPORT INFORMATION
  Report Type: 
  Country: None (occurrence: None)
  Receive Date: 20040217
  Receipt Date: 20040205
  Transmission Date: 20041129
  Serious: Yes (Other)
  Sender: FDA-Public Use
  Company Number: JP-ROCHE-358876

PATIENT
  Age: 11 Year
  Sex: Female
  Weight: 37 kg

DRUGS (3)
  1. TAMIFLU [Suspect]
     Dosage: DOSAGE REGIMEN REPORTED AS 1 CAP X 2
     Route: 048
     Dates: start: 20040130, end: 20040201
  2. CEFZON [Concomitant]
     Dosage: DOSAGE REGIMEN: 1 CAP X3
     Route: 048
     Dates: start: 20040130, end: 20040201
  3. CALONAL [Concomitant]

REACTIONS (2)
  - HAEMATOCHEZIA [None]
  - VOMITING [None]
